FAERS Safety Report 12535970 (Version 1)
Quarter: 2016Q3

REPORT INFORMATION
  Report Type: Spontaneous
  Country: US (occurrence: None)
  Receive Date: 20160706
  Receipt Date: 20160706
  Transmission Date: 20161109
  Serious: Yes (Hospitalization)
  Sender: FDA-Public Use
  Company Number: None

PATIENT
  Age: 34 Year
  Sex: Male
  Weight: 151.96 kg

DRUGS (1)
  1. INVOKANA [Suspect]
     Active Substance: CANAGLIFLOZIN
     Indication: TYPE 2 DIABETES MELLITUS
     Route: 048
     Dates: start: 20160524, end: 20160626

REACTIONS (11)
  - Abdominal pain [None]
  - Dyspnoea [None]
  - Tachycardia [None]
  - Renal mass [None]
  - Lethargy [None]
  - Dysuria [None]
  - Diarrhoea [None]
  - Nausea [None]
  - Hypotension [None]
  - Leukocytosis [None]
  - Vomiting [None]

NARRATIVE: CASE EVENT DATE: 20160625
